FAERS Safety Report 7943392-9 (Version None)
Quarter: 2011Q4

REPORT INFORMATION
  Report Type: 
  Country: None (occurrence: None)
  Receive Date: 20111128
  Receipt Date: 20111121
  Transmission Date: 20120403
  Serious: Yes (Death)
  Sender: FDA-Public Use
  Company Number: GB-UCBSA-036618

PATIENT
  Age: 65 Year
  Sex: Female

DRUGS (10)
  1. GABAPENTIN [Concomitant]
     Route: 048
  2. ALBUTEROL SULFATE AUTOHALER [Concomitant]
     Dosage: X2 PUFFS
  3. FOLIC ACID [Concomitant]
     Dosage: ONE DAY AFTER MTX
  4. AMITRIPTYLINE HCL [Concomitant]
     Dosage: ONE NIGHTLY
     Route: 048
  5. BUPRENORPHINE [Concomitant]
  6. FUROSEMIDE [Concomitant]
     Route: 048
  7. CIMZIA [Suspect]
     Indication: RHEUMATOID ARTHRITIS
     Dosage: DOSE PER INTAKE: 2, NO. OF INTAKES: 2/52, TOTAL DAILY DOSE: 6 WEEKS
     Route: 058
     Dates: start: 20110511
  8. METHOTREXATE [Concomitant]
     Route: 048
  9. CYCLIZINE [Concomitant]
  10. ESCITALOPRAM [Concomitant]
     Route: 048

REACTIONS (6)
  - BRONCHOPNEUMONIA [None]
  - INFLUENZA LIKE ILLNESS [None]
  - DEATH [None]
  - MALAISE [None]
  - VOMITING [None]
  - PAIN [None]
